FAERS Safety Report 10345751 (Version 3)
Quarter: 2016Q2

REPORT INFORMATION
  Report Type: Spontaneous
  Country: US (occurrence: US)
  Receive Date: 20140728
  Receipt Date: 20160413
  Transmission Date: 20160815
  Serious: Yes (Congenital Anomaly, Other)
  Sender: FDA-Public Use
  Company Number: US-ELI_LILLY_AND_COMPANY-US201407006573

PATIENT
  Age: 14 Year

DRUGS (1)
  1. PROZAC [Suspect]
     Active Substance: FLUOXETINE HYDROCHLORIDE
     Indication: PRODUCT USED FOR UNKNOWN INDICATION
     Dosage: UNK UNK, UNKNOWN
     Route: 064

REACTIONS (5)
  - Cardiac valve disease [Unknown]
  - Foetal exposure during pregnancy [Unknown]
  - Palpitations [Unknown]
  - Syncope [Unknown]
  - Bradycardia [Unknown]

NARRATIVE: CASE EVENT DATE: 20120503
